FAERS Safety Report 7817965-8 (Version None)
Quarter: 2011Q4

REPORT INFORMATION
  Report Type: 
  Country: None (occurrence: None)
  Receive Date: 20111017
  Receipt Date: 20111006
  Transmission Date: 20120403
  Serious: Yes (Other)
  Sender: FDA-Public Use
  Company Number: GB-GLAXOSMITHKLINE-B0753238A

PATIENT
  Age: 50 Year
  Sex: Male

DRUGS (1)
  1. MALARONE [Suspect]
     Indication: FOREIGN TRAVEL
     Route: 048
     Dates: start: 20110801, end: 20110821

REACTIONS (2)
  - NEUROPATHY PERIPHERAL [None]
  - PARAESTHESIA [None]
